FAERS Safety Report 8169166-4 (Version None)
Quarter: 2012Q1

REPORT INFORMATION
  Report Type: 
  Country: None (occurrence: None)
  Receive Date: 20120227
  Receipt Date: 20120215
  Transmission Date: 20120608
  Serious: Yes (Hospitalization)
  Sender: FDA-Public Use
  Company Number: KR-ELI_LILLY_AND_COMPANY-KR201202005267

PATIENT
  Age: 68 Year
  Sex: Male

DRUGS (3)
  1. BYETTA [Suspect]
     Dosage: 10 UG, BID
     Route: 058
     Dates: start: 20120101
  2. BYETTA [Suspect]
     Indication: TYPE 2 DIABETES MELLITUS
     Dosage: 5 UG, BID
     Route: 058
     Dates: start: 20110922, end: 20120101
  3. DRUG USED IN DIABETES [Concomitant]
     Dosage: UNK

REACTIONS (3)
  - DYSPNOEA [None]
  - CHEST PAIN [None]
  - CHEST DISCOMFORT [None]
